FAERS Safety Report 5924100-X (Version None)
Quarter: 2008Q3

REPORT INFORMATION
  Report Type: 
  Country: None (occurrence: None)
  Receive Date: 20080909
  Receipt Date: 20080507
  Transmission Date: 20090109
  Serious: Yes (Other)
  Sender: FDA-Public Use
  Company Number: 163-20785-08031999

PATIENT
  Sex: Male

DRUGS (3)
  1. THALOMID [Suspect]
     Indication: MULTIPLE MYELOMA
     Dosage: 100 MG, 1 IN 1 D, ORAL
     Route: 048
     Dates: start: 20060201, end: 20070301
  2. ZOMETA [Suspect]
     Indication: DRUG USE FOR UNKNOWN INDICATION
  3. DEXAMETHASONE TAB [Concomitant]

REACTIONS (5)
  - GAIT DISTURBANCE [None]
  - HYPERTENSION [None]
  - JOINT SWELLING [None]
  - RASH [None]
  - VISION BLURRED [None]
